FAERS Safety Report 8354131-4 (Version None)
Quarter: 2012Q2

REPORT INFORMATION
  Report Type: 
  Country: None (occurrence: None)
  Receive Date: 20120511
  Receipt Date: 20120502
  Transmission Date: 20120825
  Serious: Yes (Hospitalization)
  Sender: FDA-Public Use
  Company Number: FR-ASTRAZENECA-2012SE29686

PATIENT
  Age: 26 Year
  Sex: Female

DRUGS (2)
  1. CANCIDAS [Suspect]
     Route: 065
     Dates: start: 20120210, end: 20120210
  2. FOSCAVIR [Suspect]
     Route: 042
     Dates: start: 20120210, end: 20120210

REACTIONS (1)
  - HYPERSENSITIVITY [None]
